FAERS Safety Report 4728726-0 (Version None)
Quarter: 2005Q3

REPORT INFORMATION
  Report Type: 
  Country: None (occurrence: None)
  Receive Date: 20050727
  Receipt Date: 20050718
  Transmission Date: 20060218
  Serious: Yes (Death, Other)
  Sender: FDA-Public Use
  Company Number: 2005-07-1417

PATIENT
  Age: 68 Year
  Sex: Male

DRUGS (9)
  1. INTRON A [Suspect]
     Dosage: 3 MU/M2 D2-14 SUBCUTANEOUS
     Route: 058
  2. FLUDARABINE INJECTABLE [Suspect]
     Indication: LYMPHOMA
     Dosage: 25 MG/M2 D1-3 INTRAVENOUS
     Route: 042
  3. MITOXANTRONE INJECTABLE [Suspect]
     Indication: LYMPHOMA
     Dosage: 10 MG/M2 D1 INTRAVENOUS
     Route: 042
  4. DEXAMETHASONE [Suspect]
     Indication: LYMPHOMA
     Dosage: 20-40 MG UNKNOWN
  5. RITUXIMAB INJECTABLE [Suspect]
     Indication: LYMPHOMA
     Dosage: 375 MG INTRAVENOUS
     Route: 042
  6. CYCLOPHOSPHAMIDE [Suspect]
     Indication: LYMPHOMA
  7. DAUNOMYCIN [Suspect]
     Indication: LYMPHOMA
  8. ONCOVIN [Suspect]
     Indication: LYMPHOMA
  9. PREDNISONE [Suspect]
     Indication: LYMPHOMA

REACTIONS (2)
  - ACUTE MYELOMONOCYTIC LEUKAEMIA [None]
  - SEPSIS [None]
